FAERS Safety Report 7064895-8 (Version None)
Quarter: 2010Q4

REPORT INFORMATION
  Report Type: 
  Country: None (occurrence: None)
  Receive Date: 20101019
  Receipt Date: 20101012
  Transmission Date: 20110411
  Serious: Yes (Other)
  Sender: FDA-Public Use
  Company Number: 2010SP054792

PATIENT
  Age: 37 Year
  Sex: Female
  Weight: 68 kg

DRUGS (2)
  1. NUVARING [Suspect]
     Indication: CONTRACEPTION
     Dosage: QM;VAG, QM;VAG
     Route: 067
     Dates: start: 20090901, end: 20100201
  2. NUVARING [Suspect]
     Indication: CONTRACEPTION
     Dosage: QM;VAG, QM;VAG
     Route: 067
     Dates: start: 20100801

REACTIONS (2)
  - INCORRECT DRUG ADMINISTRATION DURATION [None]
  - UTERINE POLYP [None]
